FAERS Safety Report 9841660 (Version 1)
Quarter: 2014Q1

REPORT INFORMATION
  Report Type: Spontaneous
  Country: US (occurrence: US)
  Receive Date: 20140124
  Receipt Date: 20140124
  Transmission Date: 20141002
  Serious: Yes (Life-Threatening, Hospitalization, Other)
  Sender: FDA-Public Use
  Company Number: US-JNJFOC-20140107660

PATIENT
  Sex: Female

DRUGS (3)
  1. DOXORUBICIN [Suspect]
     Indication: BREAST CANCER
     Dosage: ON DAY 1
     Route: 042
  2. 5- FLUOROURACIL [Suspect]
     Indication: BREAST CANCER
     Dosage: DAY 1AND 8
     Route: 042
  3. CYCLOPHOSPHAMIDE [Suspect]
     Indication: BREAST CANCER
     Route: 042

REACTIONS (19)
  - Leukopenia [Unknown]
  - Breast cancer [Unknown]
  - Thrombocytopenia [Unknown]
  - Febrile neutropenia [Unknown]
  - Nausea [Unknown]
  - Vomiting [Unknown]
  - Stomatitis [Unknown]
  - Alopecia [Unknown]
  - Skin infection [Unknown]
  - Asthenia [Unknown]
  - Haemoglobin decreased [Unknown]
  - White blood cell count decreased [Unknown]
  - Granulocytes abnormal [Unknown]
  - Lymphocyte count decreased [Unknown]
  - Infection [Unknown]
  - Diarrhoea [Unknown]
  - Hypotension [Unknown]
  - Arrhythmia [Unknown]
  - Conjunctivitis [Unknown]
